FAERS Safety Report 15984001 (Version 2)
Quarter: 2019Q1

REPORT INFORMATION
  Report Type: Spontaneous
  Country: KR (occurrence: KR)
  Receive Date: 20190219
  Receipt Date: 20190312
  Transmission Date: 20190418
  Serious: Yes (Hospitalization)
  Sender: FDA-Public Use
  Company Number: KR-009507513-1901KOR001498

PATIENT
  Sex: Male

DRUGS (12)
  1. KEYTRUDA [Suspect]
     Active Substance: PEMBROLIZUMAB
     Dosage: (QUANTITY: 2, DAYS: 1)
     Dates: start: 20180803, end: 20180803
  2. KEYTRUDA [Suspect]
     Active Substance: PEMBROLIZUMAB
     Dosage: QUANTITY 2, 100 MG/VI (4ML)
     Dates: start: 20190228
  3. KEYTRUDA [Suspect]
     Active Substance: PEMBROLIZUMAB
     Indication: NON-SMALL CELL LUNG CANCER
     Dosage: (QUANTITY: 2, DAYS: 1)
     Dates: start: 20180622, end: 20180622
  4. KEYTRUDA [Suspect]
     Active Substance: PEMBROLIZUMAB
     Dosage: QUANTITY 2, 1 DAY: ^VI (4 ML)^
     Dates: start: 20190207
  5. KEYTRUDA [Suspect]
     Active Substance: PEMBROLIZUMAB
     Dosage: (QUANTITY: 2, DAYS: 1)
     Dates: start: 20180713, end: 20180713
  6. KEYTRUDA [Suspect]
     Active Substance: PEMBROLIZUMAB
     Dosage: (QUANTITY: 2, DAYS: 1)
     Dates: start: 20181101, end: 20181101
  7. KEYTRUDA [Suspect]
     Active Substance: PEMBROLIZUMAB
     Dosage: (QUANTITY: 1, DAYS: 1)
     Dates: start: 20180915, end: 20180915
  8. KEYTRUDA [Suspect]
     Active Substance: PEMBROLIZUMAB
     Dosage: (QUANTITY: 2, DAYS: 1)
     Dates: start: 20181122, end: 20181122
  9. KEYTRUDA [Suspect]
     Active Substance: PEMBROLIZUMAB
     Dosage: (QUANTITY: 2, DAYS: 1)
     Dates: start: 20190116, end: 20190116
  10. KEYTRUDA [Suspect]
     Active Substance: PEMBROLIZUMAB
     Dosage: (QUANTITY: 2, DAYS: 1)
     Dates: start: 20180824, end: 20180824
  11. KEYTRUDA [Suspect]
     Active Substance: PEMBROLIZUMAB
     Dosage: (QUANTITY: 2, DAYS: 1)
     Dates: start: 20181009, end: 20181009
  12. KEYTRUDA [Suspect]
     Active Substance: PEMBROLIZUMAB
     Dosage: (QUANTITY: 2, DAYS: 1)
     Dates: start: 20181215, end: 20181215

REACTIONS (2)
  - Inappropriate schedule of product administration [Unknown]
  - Adverse event [Unknown]

NARRATIVE: CASE EVENT DATE: 201806
